FAERS Safety Report 5863805-6 (Version None)
Quarter: 2008Q3

REPORT INFORMATION
  Report Type: 
  Country: None (occurrence: None)
  Receive Date: 20080827
  Receipt Date: 20080815
  Transmission Date: 20090109
  Serious: Yes (Death)
  Sender: FDA-Public Use
  Company Number: 15577

PATIENT
  Age: 52 Year
  Sex: Male

DRUGS (5)
  1. MORPHINE SULFATE [Suspect]
     Indication: CANCER PAIN
     Dosage: 60MG BID OR TID ORALLY
     Route: 048
     Dates: start: 20080101, end: 20080815
  2. MORPHINE SULFATE [Suspect]
     Indication: COLORECTAL CANCER
     Dosage: 60MG BID OR TID ORALLY
     Route: 048
     Dates: start: 20080101, end: 20080815
  3. FLOMAX [Concomitant]
  4. STOOL SOFTENER [Concomitant]
  5. AMBIEN [Concomitant]

REACTIONS (2)
  - DYSPNOEA [None]
  - PHARMACEUTICAL PRODUCT COMPLAINT [None]
